FAERS Safety Report 12540051 (Version 2)
Quarter: 2016Q3

REPORT INFORMATION
  Report Type: Spontaneous
  Country: FR (occurrence: FR)
  Receive Date: 20160708
  Receipt Date: 20160805
  Transmission Date: 20161109
  Serious: Yes (Other)
  Sender: FDA-Public Use
  Company Number: FR-SUN PHARMACEUTICAL INDUSTRIES LTD-2016RR-119812

PATIENT
  Age: 58 Year
  Sex: Female

DRUGS (13)
  1. TROPATEPINE [Interacting]
     Active Substance: TROPATEPINE
     Indication: SCHIZOPHRENIA
     Dosage: 15 MG, DAILY
     Route: 065
  2. NEFOPAM [Concomitant]
     Active Substance: NEFOPAM
     Indication: HAEMORRHOIDS
     Dosage: 20 MG, DAILY
     Route: 048
  3. CLOZAPINE. [Interacting]
     Active Substance: CLOZAPINE
     Dosage: 275 MG, DAILY
     Route: 065
  4. TROPATEPINE [Interacting]
     Active Substance: TROPATEPINE
     Indication: SCHIZOPHRENIA
     Dosage: 10 MG, DAILY
     Route: 065
  5. HEPTAMINOL [Concomitant]
     Active Substance: HEPTAMINOL
     Indication: ORTHOSTATIC HYPOTENSION
     Dosage: 563.4 MG, DAILY
     Route: 065
  6. TROPATEPINE [Interacting]
     Active Substance: TROPATEPINE
     Indication: EXTRAPYRAMIDAL DISORDER
     Dosage: 30 MG, DAILY
     Route: 065
  7. ARIPIPRAZOLE. [Interacting]
     Active Substance: ARIPIPRAZOLE
     Indication: SCHIZOPHRENIA
     Dosage: 10 MG, DAILY
     Route: 065
  8. ARIPIPRAZOLE, ZUCLOPENTHIXOL [Concomitant]
     Indication: SCHIZOPHRENIA
     Route: 065
  9. CLOZAPINE. [Suspect]
     Active Substance: CLOZAPINE
     Indication: SCHIZOPHRENIA
     Dosage: 350 MG, DAILY
     Route: 065
  10. LORAZEPAM. [Concomitant]
     Active Substance: LORAZEPAM
     Indication: SCHIZOPHRENIA
     Dosage: 7.5 MG, UNK
     Route: 065
  11. PARACETAMOL [Concomitant]
     Active Substance: ACETAMINOPHEN
     Indication: HEADACHE
     Dosage: 3 TO 4 G/D
     Route: 065
  12. MACROGOL [Concomitant]
     Active Substance: POLYETHYLENE GLYCOLS
     Indication: CONSTIPATION
     Dosage: 30 MG, DAILY
     Route: 065
  13. ZOPICLONE [Concomitant]
     Active Substance: ZOPICLONE
     Indication: SCHIZOPHRENIA
     Dosage: AS NEEDED
     Route: 065

REACTIONS (4)
  - Gastrooesophageal reflux disease [Recovered/Resolved]
  - Hiatus hernia [Unknown]
  - Toxicity to various agents [Recovered/Resolved]
  - Drug interaction [Unknown]
